FAERS Safety Report 5100642-4 (Version None)
Quarter: 2006Q3

REPORT INFORMATION
  Report Type: 
  Country: None (occurrence: None)
  Receive Date: 20060906
  Receipt Date: 20060822
  Transmission Date: 20061208
  Serious: Yes (Hospitalization)
  Sender: FDA-Public Use
  Company Number: DE-2006-003399

PATIENT
  Age: 31 Year
  Sex: Female

DRUGS (2)
  1. SH T00658 ID + D593 PC VSSH D593B+ T658PI (MIRANOVA 28 (SH D 593 B)) C [Suspect]
     Indication: ORAL CONTRACEPTION
     Dosage: 2 TAB (S), 1X/DAY, ORAL
     Route: 048
     Dates: start: 20050331, end: 20051012
  2. YASMIN [Suspect]
     Indication: ORAL CONTRACEPTION
     Dosage: 1 TAB (S), 1X/DAY, ORAL
     Route: 048
     Dates: start: 20051109, end: 20060126

REACTIONS (6)
  - BREAST CANCER IN SITU [None]
  - BREAST CANCER STAGE III [None]
  - LYMPHANGIOSIS CARCINOMATOSA [None]
  - METASTASES TO LYMPH NODES [None]
  - OESTROGEN RECEPTOR ASSAY POSITIVE [None]
  - PROGESTERONE RECEPTOR ASSAY POSITIVE [None]
